FAERS Safety Report 6133188-5 (Version None)
Quarter: 2009Q1

REPORT INFORMATION
  Report Type: 
  Country: None (occurrence: None)
  Receive Date: 20090325
  Receipt Date: 20090325
  Transmission Date: 20090719
  Serious: Yes (Hospitalization)
  Sender: FDA-Public Use
  Company Number: None

PATIENT
  Age: 73 Year
  Sex: Female

DRUGS (1)
  1. COUMADIN [Suspect]
     Dosage: 1 TABLET ONCE DAILY PO
     Route: 048
     Dates: start: 20081224, end: 20081226

REACTIONS (3)
  - CONTUSION [None]
  - EAR HAEMORRHAGE [None]
  - MOUTH HAEMORRHAGE [None]
